FAERS Safety Report 8282484-4 (Version None)
Quarter: 2012Q2

REPORT INFORMATION
  Report Type: 
  Country: None (occurrence: None)
  Receive Date: 20120413
  Receipt Date: 20120410
  Transmission Date: 20120825
  Serious: Yes (Other)
  Sender: FDA-Public Use
  Company Number: US-ABBOTT-12P-163-0924532-00

PATIENT
  Sex: Female
  Weight: 4.648 kg

DRUGS (12)
  1. HUMIRA [Suspect]
     Dates: end: 20111101
  2. ADVAIR DISKUS 100/50 [Concomitant]
     Indication: ASTHMA
  3. STERI STRIPS [Suspect]
     Indication: SURGERY
  4. SIMPONI [Concomitant]
     Indication: PSORIATIC ARTHROPATHY
  5. HUMIRA [Suspect]
     Indication: PSORIATIC ARTHROPATHY
     Dates: start: 20080101
  6. OMEPRAZOLE [Concomitant]
     Indication: GASTRIC DISORDER
  7. MULTI-VITAMIN [Concomitant]
     Indication: VITAMIN SUPPLEMENTATION
  8. BENADRYL [Concomitant]
     Indication: HYPERSENSITIVITY
  9. CELEBREX [Concomitant]
     Indication: PSORIATIC ARTHROPATHY
  10. ASCORBIC ACID [Concomitant]
     Indication: VITAMIN SUPPLEMENTATION
  11. SINGULAIR [Concomitant]
     Indication: HYPERSENSITIVITY
  12. VITAMIN D [Concomitant]
     Indication: VITAMIN SUPPLEMENTATION

REACTIONS (7)
  - ABASIA [None]
  - HYPOAESTHESIA [None]
  - PAIN IN EXTREMITY [None]
  - DRUG INEFFECTIVE [None]
  - BONE PAIN [None]
  - POSTOPERATIVE WOUND INFECTION [None]
  - BACK PAIN [None]
